FAERS Safety Report 5700716-0 (Version None)
Quarter: 2008Q2

REPORT INFORMATION
  Report Type: 
  Country: None (occurrence: None)
  Receive Date: 20080410
  Receipt Date: 20080229
  Transmission Date: 20081010
  Serious: No
  Sender: FDA-Public Use
  Company Number: A0703338A

PATIENT
  Age: 46 Year
  Sex: Female

DRUGS (10)
  1. TYKERB [Suspect]
     Dosage: 5TAB PER DAY
     Route: 048
     Dates: start: 20080109
  2. XELODA [Concomitant]
  3. BENECOL [Concomitant]
  4. LEVOXYL [Concomitant]
  5. NEXIUM [Concomitant]
  6. XANAX [Concomitant]
  7. LEXAPRO [Concomitant]
  8. RITALIN [Concomitant]
  9. TOPROL-XL [Concomitant]
  10. CHEMOTHERAPY [Concomitant]

REACTIONS (5)
  - ADVERSE EVENT [None]
  - DIARRHOEA [None]
  - HEADACHE [None]
  - NAUSEA [None]
  - VIRAL INFECTION [None]
